FAERS Safety Report 21406016 (Version 2)
Quarter: 2022Q4

REPORT INFORMATION
  Report Type: Spontaneous
  Country: DE (occurrence: DE)
  Receive Date: 20221004
  Receipt Date: 20221118
  Transmission Date: 20230113
  Serious: Yes (Other)
  Sender: FDA-Public Use
  Company Number: None

PATIENT
  Sex: Male

DRUGS (9)
  1. CELECOXIB [Interacting]
     Active Substance: CELECOXIB
     Indication: Ankylosing spondylitis
     Dosage: BEI BEDARF 2 BIS 3 TABLETTEN CELECOXIB UBER 2 TAGE IN EINEM MONAT  (IF NEEDED, 2 TO 3 TABLETS OF CEL
  2. CELECOXIB [Interacting]
     Active Substance: CELECOXIB
     Dosage: T?GLICH EINE TABLETTE CELECOXIB F?R CA. 5 TAGE (ONE TABLET OF CELECOXIB DAILY FOR ABOUT 5 DAYS).?HIE
  3. DILTIAZEM [Interacting]
     Active Substance: DILTIAZEM
     Indication: Coronary artery disease
  4. CANDESARTAN [Interacting]
     Active Substance: CANDESARTAN
     Indication: Coronary artery disease
  5. MOLSIDOMINE [Interacting]
     Active Substance: MOLSIDOMINE
     Indication: Coronary artery disease
  6. RANEXA [Interacting]
     Active Substance: RANOLAZINE
     Indication: Coronary artery disease
  7. ROSUVASTATIN [Concomitant]
     Active Substance: ROSUVASTATIN
     Indication: Coronary artery disease
  8. XARELTO [Concomitant]
     Active Substance: RIVAROXABAN
     Indication: Coronary artery disease
  9. ASPIRIN [Concomitant]
     Active Substance: ASPIRIN
     Indication: Coronary artery disease

REACTIONS (3)
  - Angina pectoris [Recovered/Resolved]
  - Drug interaction [Unknown]
  - Chest pain [Recovered/Resolved]
